FAERS Safety Report 6427493-2 (Version None)
Quarter: 2009Q4

REPORT INFORMATION
  Report Type: 
  Country: None (occurrence: None)
  Receive Date: 20091104
  Receipt Date: 20091022
  Transmission Date: 20100525
  Serious: Yes (Hospitalization)
  Sender: FDA-Public Use
  Company Number: PHHY2009GB46680

PATIENT
  Sex: Male

DRUGS (1)
  1. VOLTAROL PAIN- EZE(NCH) [Suspect]
     Dosage: UNK
     Route: 048
     Dates: start: 20091021

REACTIONS (2)
  - LOSS OF CONSCIOUSNESS [None]
  - SYNCOPE [None]
